FAERS Safety Report 8130373-8 (Version None)
Quarter: 2012Q1

REPORT INFORMATION
  Report Type: 
  Country: None (occurrence: None)
  Receive Date: 20120210
  Receipt Date: 20120207
  Transmission Date: 20120608
  Serious: Yes (Hospitalization, Other)
  Sender: FDA-Public Use
  Company Number: PHHY2012BR003351

PATIENT
  Age: 85 Year
  Sex: Female

DRUGS (2)
  1. DIOVAN [Suspect]
     Indication: HYPERTENSION
     Dosage: 80 MG, BID (MORNING + NIGHT)
  2. DIOVAN [Suspect]
     Dosage: 160 MG, QD (MORNING)

REACTIONS (5)
  - CHEST PAIN [None]
  - RHEUMATOID ARTHRITIS [None]
  - ARRHYTHMIA [None]
  - PULMONARY EMBOLISM [None]
  - DYSPNOEA [None]
